FAERS Safety Report 20592253 (Version 1)
Quarter: 2022Q1

REPORT INFORMATION
  Report Type: Spontaneous
  Country: FI (occurrence: FI)
  Receive Date: 20220314
  Receipt Date: 20220314
  Transmission Date: 20220423
  Serious: Yes (Death, Hospitalization, Disabling, Other)
  Sender: FDA-Public Use
  Company Number: FI-TITAN PHARMACEUTICALS-2022TAN00012

PATIENT
  Sex: Male

DRUGS (5)
  1. BUPRENORPHINE [Suspect]
     Active Substance: BUPRENORPHINE
     Route: 042
  2. AMPHETAMINE [Suspect]
     Active Substance: AMPHETAMINE
  3. BENZODIAZEPINE [Suspect]
     Active Substance: BENZODIAZEPINE
  4. CANNABIS SATIVA SUBSP. INDICA TOP [Suspect]
     Active Substance: CANNABIS SATIVA SUBSP. INDICA TOP
  5. PREGABALIN [Suspect]
     Active Substance: PREGABALIN

REACTIONS (6)
  - Somnolence [Fatal]
  - Myelopathy [Fatal]
  - Rhabdomyolysis [Fatal]
  - Compartment syndrome [Fatal]
  - Quadriparesis [Fatal]
  - Spinal shock [Fatal]
